FAERS Safety Report 4959974-2 (Version None)
Quarter: 2006Q1

REPORT INFORMATION
  Report Type: 
  Country: None (occurrence: None)
  Receive Date: 20060327
  Receipt Date: 20060310
  Transmission Date: 20060701
  Serious: Yes (Hospitalization)
  Sender: FDA-Public Use
  Company Number: S06-ESP-01239-01

PATIENT
  Age: 74 Year
  Sex: Male

DRUGS (6)
  1. PRISDAL    (CITALOPRAM HYDROBROMIDE) [Suspect]
     Indication: DEPRESSION
     Dosage: 20 MG QD PO
     Route: 048
     Dates: start: 20050628, end: 20050712
  2. NOREBOX (REBOXETINE) [Suspect]
     Indication: DEPRESSION
     Dosage: 4 MG QD PO
     Route: 048
     Dates: start: 20050621, end: 20050712
  3. CIPROFLOXACN [Suspect]
     Indication: URINARY RETENTION
     Dosage: 1 G BID PO
     Route: 048
     Dates: start: 20050708, end: 20050712
  4. DITROPAN [Concomitant]
  5. FLUOXETINE HCL [Concomitant]
  6. TEPAZEPAN [Concomitant]

REACTIONS (5)
  - AGITATION [None]
  - CONFUSIONAL STATE [None]
  - GAIT DISTURBANCE [None]
  - SPEECH DISORDER [None]
  - TREMOR [None]
